FAERS Safety Report 15629805 (Version 1)
Quarter: 2018Q4

REPORT INFORMATION
  Report Type: Spontaneous
  Country: US (occurrence: US)
  Receive Date: 20181116
  Receipt Date: 20181116
  Transmission Date: 20190205
  Serious: Yes (Other)
  Sender: FDA-Public Use
  Company Number: None

PATIENT
  Age: 64 Year
  Sex: Female
  Weight: 70.65 kg

DRUGS (9)
  1. LAXATIVE [Concomitant]
     Active Substance: UNSPECIFIED INGREDIENT
  2. TYLENOL [Concomitant]
     Active Substance: ACETAMINOPHEN
  3. TENNS UNIT [Concomitant]
  4. POTASSIUM [Concomitant]
     Active Substance: POTASSIUM
  5. PROPANOLOL [Suspect]
     Active Substance: PROPRANOLOL HYDROCHLORIDE
     Dosage: ?          QUANTITY:30 TABLET(S);?
     Route: 048
  6. MOTRIN [Concomitant]
     Active Substance: IBUPROFEN
  7. SLEEP AID [Concomitant]
     Active Substance: DIPHENHYDRAMINE HYDROCHLORIDE\DOXYLAMINE SUCCINATE
  8. VITIMIN D [Concomitant]
  9. TIZIDINE [Concomitant]

REACTIONS (1)
  - Chest pain [None]

NARRATIVE: CASE EVENT DATE: 20181106
